FAERS Safety Report 6579777-5 (Version None)
Quarter: 2010Q1

REPORT INFORMATION
  Report Type: 
  Country: None (occurrence: None)
  Receive Date: 20100212
  Receipt Date: 20100208
  Transmission Date: 20100710
  Serious: Yes (Hospitalization)
  Sender: FDA-Public Use
  Company Number: B0631921A

PATIENT
  Sex: Male

DRUGS (6)
  1. NARAMIG [Suspect]
     Indication: MIGRAINE
     Dosage: 2.5MG AS REQUIRED
     Route: 048
     Dates: end: 20091013
  2. ZOLOFT [Concomitant]
     Indication: DRUG USE FOR UNKNOWN INDICATION
     Dosage: 50MG PER DAY
     Route: 048
  3. LERCAN [Concomitant]
     Dosage: 20MG PER DAY
     Route: 048
  4. LEXOMIL [Concomitant]
     Dosage: .5TAB AS REQUIRED
     Route: 048
  5. RANIPLEX [Concomitant]
     Indication: DRUG USE FOR UNKNOWN INDICATION
     Dosage: 300MG PER DAY
     Route: 048
  6. AVLOCARDYL [Concomitant]
     Dosage: 160MG PER DAY
     Route: 048
     Dates: start: 20050101

REACTIONS (6)
  - ACUTE CORONARY SYNDROME [None]
  - CHEST PAIN [None]
  - DRUG INEFFECTIVE [None]
  - DYSPNOEA EXERTIONAL [None]
  - MYOCARDIAL INFARCTION [None]
  - PALPITATIONS [None]
